FAERS Safety Report 9260353 (Version 1)
Quarter: 2013Q2

REPORT INFORMATION
  Report Type: Report from Study
  Country: CN (occurrence: CN)
  Receive Date: 20130429
  Receipt Date: 20130429
  Transmission Date: 20140414
  Serious: Yes (Death, Hospitalization)
  Sender: FDA-Public Use
  Company Number: PHHO2010CN14258

PATIENT
  Age: 59 Year
  Sex: Male
  Weight: 90 kg

DRUGS (17)
  1. BLINDED ALISKIREN [Suspect]
     Dosage: CODE NOT BROKEN
     Route: 048
     Dates: start: 20100611, end: 20100827
  2. BLINDED ENALAPRIL [Suspect]
     Dosage: CODE NOT BROKEN
     Route: 048
     Dates: start: 20100611, end: 20100827
  3. BLINDED NO TREATMENT RECEIVED [Suspect]
     Dosage: CODE NOT BROKEN
     Route: 048
     Dates: start: 20100611, end: 20100827
  4. ISOSORBIDE MONONITRATE [Concomitant]
     Indication: ANGINA PECTORIS
     Dosage: 40 MG, BID
     Route: 048
     Dates: start: 2007
  5. ASPIRIN [Concomitant]
     Indication: THROMBOSIS PROPHYLAXIS
     Dosage: 100 MG, QD
     Route: 048
     Dates: start: 200711
  6. DIGOXIN [Concomitant]
     Indication: CARDIAC FAILURE
     Dosage: 0.25 MG, QD
     Route: 048
  7. FUROSEMIDE [Concomitant]
     Indication: CARDIAC FAILURE
     Dosage: 20 MG, BID
     Route: 048
  8. SPIRONOLACTONE [Concomitant]
     Indication: CARDIAC FAILURE
     Dosage: 20 MG, BID
     Route: 048
  9. BISOPROLOL [Concomitant]
     Indication: CARDIAC FAILURE
     Dosage: 5 MG, TID
     Route: 048
     Dates: start: 2007
  10. METFORMIN HYDROCHLORIDE [Concomitant]
     Indication: DIABETES MELLITUS
     Dosage: 500 MG, TID
     Route: 048
     Dates: start: 200711, end: 201109
  11. SODIUM BICARBONATE [Concomitant]
     Indication: HYPERURICAEMIA
     Dosage: 0.5 G, TID
     Route: 048
     Dates: start: 20110727, end: 20110815
  12. SODIUM BICARBONATE [Concomitant]
     Dosage: 1 G, TID
     Route: 048
     Dates: start: 20110829, end: 20110831
  13. SODIUM BICARBONATE [Concomitant]
     Dosage: 1 G, TID
     Route: 048
     Dates: start: 20110922
  14. BENZBROMARONE [Concomitant]
     Indication: HYPERURICAEMIA
     Dosage: 50 MG, QD
     Route: 048
     Dates: start: 20110727, end: 20110815
  15. BENZBROMARONE [Concomitant]
     Dosage: 50 MG, QD
     Route: 048
     Dates: start: 20111008
  16. LORAZEPAM [Concomitant]
     Indication: SLEEP DISORDER
     Dosage: 0.5 MG, QD
     Route: 048
     Dates: start: 20110928
  17. POTASSIUM CHLORIDE [Concomitant]
     Indication: HYPOKALAEMIA
     Dosage: 0.5 G, QD
     Route: 048
     Dates: start: 201205, end: 20120526

REACTIONS (5)
  - Cardiac failure [Fatal]
  - Cerebral infarction [Recovering/Resolving]
  - Dizziness [Recovering/Resolving]
  - Diabetes mellitus [Recovering/Resolving]
  - Arrhythmia [Recovering/Resolving]
